FAERS Safety Report 9743172 (Version 2)
Quarter: 2015Q3

REPORT INFORMATION
  Report Type: Spontaneous
  Country: US (occurrence: US)
  Receive Date: 20131210
  Receipt Date: 20150804
  Transmission Date: 20151125
  Serious: No
  Sender: FDA-Public Use
  Company Number: US-GILEAD-2009-0024869

PATIENT
  Age: 70 Year
  Sex: Female

DRUGS (10)
  1. FUROSEMIDE. [Concomitant]
     Active Substance: FUROSEMIDE
  2. ZOCOR [Concomitant]
     Active Substance: SIMVASTATIN
  3. ACTONEL [Concomitant]
     Active Substance: RISEDRONATE SODIUM
  4. REVATIO [Concomitant]
     Active Substance: SILDENAFIL CITRATE
  5. PREDNISONE. [Concomitant]
     Active Substance: PREDNISONE
  6. K-DUR [Concomitant]
     Active Substance: POTASSIUM CHLORIDE
  7. LETAIRIS [Suspect]
     Active Substance: AMBRISENTAN
     Indication: PULMONARY ARTERIAL HYPERTENSION
     Route: 048
  8. PRANDIN [Concomitant]
     Active Substance: REPAGLINIDE
  9. EVISTA [Concomitant]
     Active Substance: RALOXIFENE HYDROCHLORIDE
  10. NEXIUM [Concomitant]
     Active Substance: ESOMEPRAZOLE MAGNESIUM

REACTIONS (2)
  - Dry skin [Unknown]
  - Red blood cell count decreased [Not Recovered/Not Resolved]
